FAERS Safety Report 6885637-2 (Version None)
Quarter: 2010Q3

REPORT INFORMATION
  Report Type: 
  Country: None (occurrence: None)
  Receive Date: 20100729
  Receipt Date: 20080303
  Transmission Date: 20110219
  Serious: No
  Sender: FDA-Public Use
  Company Number: US-PFIZER INC-2008018095

PATIENT
  Sex: Female
  Weight: 68.181 kg

DRUGS (3)
  1. CELEBREX [Suspect]
     Indication: ARTHRITIS
     Route: 048
     Dates: start: 20070101, end: 20070101
  2. ANTIHYPERTENSIVES [Concomitant]
  3. ACETAMINOPHEN [Concomitant]
     Indication: ARTHRITIS

REACTIONS (8)
  - ALOPECIA [None]
  - COUGH [None]
  - DYSPHAGIA [None]
  - EXPIRED DRUG ADMINISTERED [None]
  - INSOMNIA [None]
  - PAIN IN EXTREMITY [None]
  - PRURITUS [None]
  - VOMITING [None]
